FAERS Safety Report 8581533-3 (Version None)
Quarter: 2012Q3

REPORT INFORMATION
  Report Type: 
  Country: None (occurrence: None)
  Receive Date: 20120809
  Receipt Date: 20120801
  Transmission Date: 20120928
  Serious: Yes (Other)
  Sender: FDA-Public Use
  Company Number: BR-BAYER-2012-077339

PATIENT
  Age: 39 Year
  Sex: Female
  Weight: 63.039 kg

DRUGS (5)
  1. ATORVASTATIN CALCIUM [Concomitant]
     Indication: BLOOD CHOLESTEROL INCREASED
     Dosage: 1 DF, HS
     Route: 048
     Dates: start: 20120601, end: 20120701
  2. MIRENA [Suspect]
     Indication: MENSTRUAL CYCLE MANAGEMENT
     Dosage: 20 ?G/D, CONT
     Route: 015
     Dates: start: 20020101, end: 20070101
  3. MIRENA [Suspect]
     Dosage: 20 ?G/D, CONT
     Route: 015
     Dates: start: 20120101, end: 20120701
  4. MIRENA [Suspect]
     Dosage: 20 ?G/D, CONT
     Route: 015
     Dates: start: 20070101, end: 20120101
  5. MIRENA [Suspect]
     Dosage: 20 ?G/D, CONT
     Route: 015
     Dates: start: 20120727

REACTIONS (5)
  - AMENORRHOEA [None]
  - THYROID NEOPLASM [None]
  - DEVICE EXPULSION [None]
  - MENORRHAGIA [None]
  - HYPERTHYROIDISM [None]
